FAERS Safety Report 6845089-5 (Version None)
Quarter: 2010Q3

REPORT INFORMATION
  Report Type: 
  Country: None (occurrence: None)
  Receive Date: 20100715
  Receipt Date: 20100630
  Transmission Date: 20110219
  Serious: Yes (Other)
  Sender: FDA-Public Use
  Company Number: JP-PFIZER INC-2010081335

PATIENT
  Age: 13 Year
  Sex: Female
  Weight: 40.6 kg

DRUGS (3)
  1. METHYLPREDNISOLONE SODIUM SUCCINATE [Suspect]
     Indication: GLOMERULONEPHRITIS
     Dosage: UNK
     Route: 042
     Dates: start: 20090701
  2. PREDNISOLONE [Suspect]
     Indication: GLOMERULONEPHRITIS
     Dosage: UNK
     Route: 048
     Dates: start: 20090701
  3. CYCLOPHOSPHAMIDE [Concomitant]
     Indication: GLOMERULONEPHRITIS
     Dosage: UNK
     Route: 042
     Dates: start: 20090701

REACTIONS (1)
  - SKIN STRIAE [None]
